FAERS Safety Report 9408027 (Version 1)
Quarter: 2013Q3

REPORT INFORMATION
  Report Type: Spontaneous
  Country: US (occurrence: None)
  Receive Date: 20130717
  Receipt Date: 20130717
  Transmission Date: 20140515
  Serious: Yes (Other)
  Sender: FDA-Public Use
  Company Number: None

PATIENT
  Sex: Female
  Weight: 85 kg

DRUGS (1)
  1. K-Y INTENSE AROUSAL GEL [Suspect]
     Route: 067
     Dates: start: 201305

REACTIONS (1)
  - Kidney infection [None]
